FAERS Safety Report 4289799-5 (Version None)
Quarter: 2004Q1

REPORT INFORMATION
  Report Type: 
  Country: None (occurrence: None)
  Receive Date: 20040210
  Receipt Date: 20040129
  Transmission Date: 20041129
  Serious: Yes (Disabling)
  Sender: FDA-Public Use
  Company Number: CH-GLAXOSMITHKLINE-B0321662A

PATIENT
  Age: 79 Year
  Sex: Female
  Weight: 68 kg

DRUGS (7)
  1. FLUTICASONE PROPIONATE [Suspect]
     Indication: ASTHMA
     Dosage: 500MG PER DAY
     Route: 055
  2. LEVOFLOXACIN [Suspect]
     Dosage: 1000MG PER DAY
     Route: 048
     Dates: start: 20040106, end: 20040109
  3. ENALAPRIL MALEATE AND HYDROCHLOROTHIAZIDE [Concomitant]
     Dosage: 2TAB PER DAY
     Route: 048
  4. SALMETEROL [Concomitant]
     Indication: ASTHMA
     Dosage: 2U PER DAY
     Route: 055
  5. LORAZEPAM [Concomitant]
     Dosage: 1MG PER DAY
     Route: 048
  6. CACIT VIT D3 [Concomitant]
     Indication: OSTEOPOROSIS
     Route: 048
  7. TRAMADOL HCL [Concomitant]
     Indication: BACK PAIN
     Dosage: 200MG PER DAY
     Route: 048

REACTIONS (2)
  - DRUG INTERACTION [None]
  - TENDONITIS [None]
